FAERS Safety Report 17523073 (Version 1)
Quarter: 2020Q1

REPORT INFORMATION
  Report Type: Spontaneous
  Country: FR (occurrence: FR)
  Receive Date: 20200310
  Receipt Date: 20200310
  Transmission Date: 20200409
  Serious: Yes (Hospitalization, Other)
  Sender: FDA-Public Use
  Company Number: FR-BAYER-2020-040272

PATIENT
  Age: 97 Year
  Sex: Male

DRUGS (1)
  1. CIFLOX 500 MG [Suspect]
     Active Substance: CIPROFLOXACIN
     Indication: URINARY TRACT INFECTION
     Dosage: 500 MG, BID
     Dates: start: 20200229, end: 20200301

REACTIONS (5)
  - Confusional state [Unknown]
  - Aggression [Unknown]
  - Hallucination, visual [Unknown]
  - Prosopagnosia [Unknown]
  - Intestinal obstruction [Unknown]

NARRATIVE: CASE EVENT DATE: 2020
